FAERS Safety Report 21763171 (Version 1)
Quarter: 2022Q4

REPORT INFORMATION
  Report Type: Report from Study
  Country: US (occurrence: US)
  Receive Date: 20221221
  Receipt Date: 20221221
  Transmission Date: 20230113
  Serious: Yes (Hospitalization)
  Sender: FDA-Public Use
  Company Number: US-MIRATI-MYG202203255

PATIENT

DRUGS (25)
  1. ADAGRASIB [Suspect]
     Active Substance: ADAGRASIB
     Indication: Non-small cell lung cancer stage IV
     Dosage: 400 MG, BID
     Route: 048
     Dates: start: 20221027, end: 20221130
  2. ERBITUX [Suspect]
     Active Substance: CETUXIMAB
     Indication: Non-small cell lung cancer stage IV
     Dosage: 900 MG Q 2 WEEKS
     Route: 042
     Dates: start: 20221027, end: 20221027
  3. ROSUVASTATIN [Concomitant]
     Active Substance: ROSUVASTATIN
     Indication: Hypercholesterolaemia
     Dosage: 40 MG, QD
     Route: 048
     Dates: start: 2020
  4. TEMAZEPAM [Concomitant]
     Active Substance: TEMAZEPAM
     Indication: Insomnia
     Dosage: 30 MG, PRN
     Route: 048
     Dates: start: 2004
  5. PREDNISONE [Concomitant]
     Active Substance: PREDNISONE
     Indication: Rheumatoid arthritis
     Dosage: 5 MG, QD
     Route: 048
     Dates: start: 201907
  6. ORENCIA [Concomitant]
     Active Substance: ABATACEPT
     Indication: Rheumatoid arthritis
     Dosage: 750 MG, Q MONTHLY
     Route: 042
     Dates: start: 201907
  7. PROLIA [Concomitant]
     Active Substance: DENOSUMAB
     Indication: Osteopenia
     Dosage: 60 MG, QY
     Route: 058
     Dates: start: 2017
  8. QUININE SULFATE [Concomitant]
     Active Substance: QUININE SULFATE
     Indication: Muscle spasms
     Dosage: 324 MG, PRN
     Route: 048
     Dates: start: 2012
  9. PROMETHAZINE [Concomitant]
     Active Substance: PROMETHAZINE HYDROCHLORIDE
     Indication: Nausea
     Dosage: 25 MG, PRN
     Route: 048
     Dates: start: 202209
  10. BUDESONIDE\FORMOTEROL\GLYCOPYRRONIUM [Concomitant]
     Active Substance: BUDESONIDE\FORMOTEROL\GLYCOPYRRONIUM
     Indication: Wheezing
     Dosage: 2 PUFFS, BID
     Dates: start: 202209
  11. STRONTIUM [Concomitant]
     Active Substance: STRONTIUM
     Indication: Nutritional supplementation
     Dosage: 1.5 G, QD
     Route: 048
     Dates: start: 2010
  12. MELATONIN [Concomitant]
     Active Substance: MELATONIN
     Indication: Insomnia
     Dosage: 5 MG, PRN
     Route: 048
     Dates: start: 2010
  13. One a day women^s 50+ complete multivitamin [Concomitant]
     Indication: Nutritional supplementation
     Dosage: 1 G, QD
     Route: 048
     Dates: start: 2010
  14. VITAMIN C [Concomitant]
     Active Substance: ASCORBIC ACID
     Indication: Nutritional supplementation
     Dosage: 1.5 G, QD
     Route: 048
     Dates: start: 2010
  15. NEXIUM [Concomitant]
     Active Substance: ESOMEPRAZOLE MAGNESIUM
     Indication: Dyspepsia
     Dosage: 20 MG, QD
     Route: 048
     Dates: start: 20221027
  16. DYAZIDE [Concomitant]
     Active Substance: HYDROCHLOROTHIAZIDE\TRIAMTERENE
     Indication: Tinnitus
     Dosage: 37.5 / 25MG, QD
     Route: 048
     Dates: start: 20221113
  17. MECLIZINE [Concomitant]
     Active Substance: MECLIZINE HYDROCHLORIDE
     Indication: Dizziness
     Dosage: 25 MG, BID
     Route: 048
     Dates: start: 20221112
  18. POTASSIUM CHLORIDE [Concomitant]
     Active Substance: POTASSIUM CHLORIDE
     Indication: Nutritional supplementation
     Dosage: 20 MEQ, BID
     Route: 048
     Dates: start: 20221115
  19. COLACE [Concomitant]
     Active Substance: DOCUSATE SODIUM
     Indication: Constipation
     Dosage: 50 MG, PRN
     Route: 048
     Dates: start: 20221115
  20. MIRALAX [Concomitant]
     Active Substance: POLYETHYLENE GLYCOL 3350
     Indication: Constipation
     Dosage: 17 G, PRN
     Route: 048
     Dates: start: 20221115
  21. SODIUM CHLORIDE [Concomitant]
     Active Substance: SODIUM CHLORIDE
     Indication: Vomiting
     Dosage: 0.9 %, SINGLE
     Route: 042
     Dates: start: 20221201, end: 20221201
  22. SODIUM CHLORIDE [Concomitant]
     Active Substance: SODIUM CHLORIDE
     Indication: Nausea
  23. SODIUM CHLORIDE [Concomitant]
     Active Substance: SODIUM CHLORIDE
     Indication: Dehydration
  24. GRANISETRON [Concomitant]
     Active Substance: GRANISETRON
     Indication: Nausea
     Dosage: 1 MG, BID
     Route: 048
     Dates: start: 20221201
  25. GRANISETRON [Concomitant]
     Active Substance: GRANISETRON
     Indication: Vomiting

REACTIONS (1)
  - Muscular weakness [Not Recovered/Not Resolved]

NARRATIVE: CASE EVENT DATE: 20221205
